FAERS Safety Report 6172576-8 (Version None)
Quarter: 2009Q2

REPORT INFORMATION
  Report Type: 
  Country: None (occurrence: None)
  Receive Date: 20090428
  Receipt Date: 20090416
  Transmission Date: 20091009
  Serious: Yes (Other)
  Sender: FDA-Public Use
  Company Number: 1000004184

PATIENT
  Age: 67 Year
  Sex: Female
  Weight: 83.9154 kg

DRUGS (5)
  1. BYSTOLIC [Suspect]
     Indication: BLOOD PRESSURE INCREASED
     Dosage: 5 MG (5 MG,1 IN 1 D),ORAL
     Route: 048
     Dates: start: 20080917
  2. PEPCID AC [Suspect]
     Dosage: ORAL
     Route: 048
  3. BACTRIM DS [Suspect]
     Indication: CYSTITIS
     Dosage: (2 IN 1 D),ORAL
     Route: 048
     Dates: start: 20081210, end: 20081212
  4. ZITHROMAX [Suspect]
     Dosage: ORAL
     Route: 048
  5. ASPIRIN [Concomitant]

REACTIONS (11)
  - ABDOMINAL PAIN UPPER [None]
  - BLOOD PRESSURE INCREASED [None]
  - CYSTITIS [None]
  - DIPLOPIA [None]
  - DRUG INTERACTION [None]
  - FEELING ABNORMAL [None]
  - HEADACHE [None]
  - INCORRECT STORAGE OF DRUG [None]
  - MOVEMENT DISORDER [None]
  - NAUSEA [None]
  - VOMITING [None]
